FAERS Safety Report 18631903 (Version 2)
Quarter: 2020Q4

REPORT INFORMATION
  Report Type: Spontaneous
  Country: US (occurrence: US)
  Receive Date: 20201217
  Receipt Date: 20201231
  Transmission Date: 20210114
  Serious: No
  Sender: FDA-Public Use
  Company Number: US-DRREDDYS-USA/USA/20/0129884

PATIENT
  Age: 16 Year
  Sex: Female

DRUGS (1)
  1. SIROLIMUS. [Suspect]
     Active Substance: SIROLIMUS
     Indication: ANGIOSARCOMA
     Dosage: 10-15 NG/DL
     Route: 048

REACTIONS (4)
  - Fatigue [Unknown]
  - Hyperlipidaemia [Unknown]
  - Product use in unapproved indication [Unknown]
  - Mucosal inflammation [Unknown]
